FAERS Safety Report 5642536-1 (Version None)
Quarter: 2008Q1

REPORT INFORMATION
  Report Type: 
  Country: None (occurrence: None)
  Receive Date: 20080227
  Receipt Date: 20080227
  Transmission Date: 20080703
  Serious: Yes (Hospitalization)
  Sender: FDA-Public Use
  Company Number: None

PATIENT
  Sex: Male
  Weight: 97.0698 kg

DRUGS (9)
  1. PEG INTERFERON ALFA 2B [Suspect]
     Indication: HEPATITIS C
     Dosage: PRIOR TO ADMINISTRATION
  2. RIBAVIRIN [Suspect]
     Indication: HEPATITIS C
     Dosage: PRIOR TO ADMINISTRATION
  3. CYCLOBENZAPRINE HCL [Concomitant]
  4. PRILOSEC [Concomitant]
  5. LIDODERM [Concomitant]
  6. TERAZOSIN HCL [Concomitant]
  7. VICODIN [Concomitant]
  8. ALTACE [Concomitant]
  9. NABUMETONE [Concomitant]

REACTIONS (1)
  - OEDEMA PERIPHERAL [None]
